FAERS Safety Report 23349085 (Version 1)
Quarter: 2023Q4

REPORT INFORMATION
  Report Type: Other
  Country: TH (occurrence: None)
  Receive Date: 20231229
  Receipt Date: 20231229
  Transmission Date: 20240109
  Serious: Yes (Other)
  Sender: FDA-Public Use
  Company Number: TH-ROCHE-3481685

PATIENT

DRUGS (8)
  1. RITUXIMAB [Suspect]
     Active Substance: RITUXIMAB
     Indication: Systemic lupus erythematosus
     Route: 065
  2. MYCOPHENOLATE MOFETIL [Suspect]
     Active Substance: MYCOPHENOLATE MOFETIL
     Indication: Systemic lupus erythematosus
     Route: 065
  3. CYCLOPHOSPHAMIDE [Suspect]
     Active Substance: CYCLOPHOSPHAMIDE
     Indication: Systemic lupus erythematosus
     Route: 065
  4. AZATHIOPRINE [Suspect]
     Active Substance: AZATHIOPRINE
     Indication: Systemic lupus erythematosus
     Route: 065
  5. HYDROXYCHLOROQUINE [Suspect]
     Active Substance: HYDROXYCHLOROQUINE
     Indication: Systemic lupus erythematosus
     Route: 065
  6. METHOTREXATE [Suspect]
     Active Substance: METHOTREXATE
     Indication: Systemic lupus erythematosus
     Route: 065
  7. CYCLOSPORINE [Suspect]
     Active Substance: CYCLOSPORINE
     Indication: Systemic lupus erythematosus
     Route: 065
  8. TACROLIMUS [Suspect]
     Active Substance: TACROLIMUS
     Indication: Systemic lupus erythematosus
     Route: 065

REACTIONS (53)
  - Cataract [Unknown]
  - Osteonecrosis [Unknown]
  - Osteoporotic fracture [Unknown]
  - Salmonella sepsis [Unknown]
  - Fungal peritonitis [Unknown]
  - Staphylococcal osteomyelitis [Unknown]
  - Tuberculosis of central nervous system [Unknown]
  - Staphylococcal sepsis [Unknown]
  - Pneumococcal sepsis [Unknown]
  - Streptococcal sepsis [Unknown]
  - Pulmonary hypertension [Unknown]
  - Shrinking lung syndrome [Unknown]
  - Pneumonia pseudomonal [Unknown]
  - Osteomyelitis salmonella [Unknown]
  - Cerebrovascular accident [Unknown]
  - End stage renal disease [Unknown]
  - Neoplasm malignant [Unknown]
  - Varicella zoster virus infection [Unknown]
  - Pneumonia respiratory syncytial viral [Unknown]
  - Escherichia urinary tract infection [Unknown]
  - Soft tissue infection [Unknown]
  - Gastroenteritis salmonella [Unknown]
  - Pericarditis infective [Unknown]
  - Pneumonia mycoplasmal [Unknown]
  - Pneumonia haemophilus [Unknown]
  - Pneumonia viral [Unknown]
  - Pneumonia cytomegaloviral [Unknown]
  - Bronchopulmonary aspergillosis [Unknown]
  - Pneumocystis jirovecii pneumonia [Unknown]
  - Pneumonia klebsiella [Unknown]
  - Klebsiella urinary tract infection [Unknown]
  - Urinary tract infection enterococcal [Unknown]
  - Streptococcal urinary tract infection [Unknown]
  - Gastroenteritis norovirus [Unknown]
  - Central nervous system infection [Unknown]
  - Central nervous system viral infection [Unknown]
  - Cytomegalovirus infection [Unknown]
  - Influenza [Unknown]
  - Coronavirus infection [Unknown]
  - Dengue fever [Unknown]
  - Atypical mycobacterial infection [Unknown]
  - Optic atrophy [Unknown]
  - Retinal degeneration [Unknown]
  - Cognitive disorder [Unknown]
  - Psychotic disorder [Unknown]
  - Seizure [Unknown]
  - Venous thrombosis [Unknown]
  - Peripheral venous disease [Unknown]
  - Spinal compression fracture [Unknown]
  - Alopecia [Unknown]
  - Hypogonadism [Unknown]
  - Diabetes mellitus [Unknown]
  - Varicella [Unknown]
